FAERS Safety Report 18176043 (Version 3)
Quarter: 2020Q3

REPORT INFORMATION
  Report Type: Spontaneous
  Country: US (occurrence: US)
  Receive Date: 20200820
  Receipt Date: 20200921
  Transmission Date: 20201103
  Serious: Yes (Other)
  Sender: FDA-Public Use
  Company Number: US-BOIRON INC.-2020BOR00172

PATIENT
  Sex: Female

DRUGS (4)
  1. GASALIA [HOMEOPATHICS] [Suspect]
     Active Substance: HOMEOPATHICS
     Dosage: 2 TABLETS
  2. GASALIA [HOMEOPATHICS] [Suspect]
     Active Substance: HOMEOPATHICS
     Indication: FLATULENCE
     Dosage: 1 TABLETS
  3. GASALIA [HOMEOPATHICS] [Suspect]
     Active Substance: HOMEOPATHICS
     Dosage: 3 TABLETS
  4. UNSPECIFIED PAIN MEDICATION [Concomitant]
     Active Substance: UNSPECIFIED INGREDIENT
     Indication: BACK PAIN

REACTIONS (5)
  - Diarrhoea [Recovered/Resolved]
  - Overdose [Recovered/Resolved]
  - Back pain [Unknown]
  - Asthenia [Unknown]
  - Rectal haemorrhage [Unknown]
